FAERS Safety Report 4978450-4 (Version None)
Quarter: 2006Q1

REPORT INFORMATION
  Report Type: 
  Country: None (occurrence: None)
  Receive Date: 20060227
  Receipt Date: 20050218
  Transmission Date: 20060701
  Serious: Yes (Life-Threatening, Disabling)
  Sender: FDA-Public Use
  Company Number: WAES 0502USA02542

PATIENT
  Age: 75 Year
  Sex: Female

DRUGS (17)
  1. ZOCOR [Suspect]
     Indication: BLOOD CHOLESTEROL INCREASED
     Dosage: 20 MG/DAILY/PO
     Route: 048
     Dates: start: 20030801
  2. ADVAIR DISKUS 100/50 [Concomitant]
  3. AMBIEN [Concomitant]
  4. COMBIVENT [Concomitant]
  5. COUMADIN [Concomitant]
  6. COZAAR [Concomitant]
  7. GLUCOTROL [Concomitant]
  8. K-DUR 10 [Concomitant]
  9. LASIX [Concomitant]
  10. SINGULAIR [Concomitant]
  11. ZANTAC [Concomitant]
  12. ZAROXOLYN [Concomitant]
  13. ASPIRIN [Concomitant]
  14. DIGOXIN [Concomitant]
  15. INSULIN [Concomitant]
  16. QUININE [Concomitant]
  17. VITAMINS [Concomitant]

REACTIONS (1)
  - MYALGIA [None]
